FAERS Safety Report 8737449 (Version 3)
Quarter: 2012Q4

REPORT INFORMATION
  Report Type: Report from Study
  Country: JP (occurrence: JP)
  Receive Date: 20120822
  Receipt Date: 20121214
  Transmission Date: 20130627
  Serious: Yes (Hospitalization, Other)
  Sender: FDA-Public Use
  Company Number: JP-VERTEX PHARMACEUTICAL INC.-2012-019709

PATIENT
  Age: 71 Year
  Sex: Female

DRUGS (18)
  1. VX-950 (TELAPREVIR) [Suspect]
     Indication: CHRONIC HEPATITIS C
     Dosage: 1500 mg, qd
     Route: 048
     Dates: start: 20120606, end: 20120717
  2. RIBAVIRIN [Suspect]
     Indication: CHRONIC HEPATITIS C
     Dosage: 600 mg, qd
     Route: 048
     Dates: start: 20120606, end: 20120702
  3. RIBAVIRIN [Suspect]
     Dosage: 400 mg, qd
     Route: 048
     Dates: start: 20120703, end: 20120717
  4. PEGINTERFERON ALFA-2B [Suspect]
     Indication: CHRONIC HEPATITIS C
     Dosage: 80 ?g, qw
     Route: 058
     Dates: start: 20120606, end: 20120710
  5. URSO                               /00465701/ [Concomitant]
     Dosage: 300 mg, qd
     Route: 048
     Dates: end: 20120620
  6. DIOVAN [Concomitant]
     Dosage: 80 mg, qd
     Route: 048
     Dates: end: 20120620
  7. PREMINENT [Concomitant]
     Dosage: 1 DF, qd
     Route: 048
     Dates: start: 20120608, end: 20120620
  8. PREMINENT [Concomitant]
     Dosage: 1 DF, qd
     Route: 048
     Dates: start: 20121016
  9. ZYLORIC [Concomitant]
     Dosage: 200 mg, qd
     Route: 048
     Dates: start: 20120611, end: 20120801
  10. GASTER [Concomitant]
     Dosage: 20 mg, UNK
     Route: 048
     Dates: start: 20120611
  11. MUCOSTA [Concomitant]
     Dosage: 300 mg, qd
     Route: 048
     Dates: start: 20120611
  12. MARZULENE                          /00317302/ [Concomitant]
     Dosage: 2.01 g, qd
     Route: 048
     Dates: start: 20120611
  13. DOGMATYL [Concomitant]
     Dosage: 150 mg, qd
     Route: 048
     Dates: start: 20120611
  14. LIPITOR [Concomitant]
     Dosage: 10 mg, qd
     Route: 048
     Dates: start: 20120614, end: 20120620
  15. INDOMETACIN [Concomitant]
     Dosage: 70 mg, qd
     Route: 061
     Dates: start: 20120614, end: 20120628
  16. INDOMETACIN [Concomitant]
     Dosage: UNK
  17. PRIMPERAN [Concomitant]
     Dosage: 10 mg, prn
     Route: 048
     Dates: start: 20120619
  18. PRIMPERAN [Concomitant]
     Dosage: 15 mg, qd
     Route: 048
     Dates: start: 20120703

REACTIONS (4)
  - White blood cell count decreased [Not Recovered/Not Resolved]
  - White blood cell count decreased [Not Recovered/Not Resolved]
  - Blood urea increased [Unknown]
  - Haemoglobin decreased [Recovered/Resolved]
